FAERS Safety Report 9197811 (Version 2)
Quarter: 2013Q2

REPORT INFORMATION
  Report Type: Spontaneous
  Country: US (occurrence: US)
  Receive Date: 20130328
  Receipt Date: 20130513
  Transmission Date: 20140414
  Serious: Yes (Other)
  Sender: FDA-Public Use
  Company Number: US-PFIZER INC-2013099242

PATIENT
  Age: 84 Year
  Sex: Male
  Weight: 82 kg

DRUGS (1)
  1. LIPITOR [Suspect]
     Indication: HYPERLIPIDAEMIA
     Dosage: 20 MG, 1X/DAY

REACTIONS (5)
  - Amyotrophic lateral sclerosis [Unknown]
  - Hypertension [Unknown]
  - Impaired fasting glucose [Unknown]
  - Drug ineffective [Unknown]
  - Wrong technique in drug usage process [Unknown]
